FAERS Safety Report 22520474 (Version 1)
Quarter: 2023Q2

REPORT INFORMATION
  Report Type: Spontaneous
  Country: US (occurrence: None)
  Receive Date: 20230603
  Receipt Date: 20230603
  Transmission Date: 20230722
  Serious: Yes (Hospitalization)
  Sender: FDA-Public Use
  Company Number: None

PATIENT
  Age: 37 Year
  Sex: Male
  Weight: 162 kg

DRUGS (5)
  1. EPIDIOLEX [Suspect]
     Active Substance: CANNABIDIOL
     Indication: Epilepsy
     Dosage: OTHER QUANTITY : 17 ML;?FREQUENCY : TWICE A DAY;?
     Route: 048
     Dates: start: 20210801, end: 20230529
  2. KEPPRA [Concomitant]
     Active Substance: LEVETIRACETAM
  3. TRILEPTAL [Concomitant]
     Active Substance: OXCARBAZEPINE
  4. TOPAMAX [Concomitant]
     Active Substance: TOPIRAMATE
  5. VITAMIN D [Concomitant]
     Active Substance: VITAMIN D NOS

REACTIONS (8)
  - Therapy cessation [None]
  - Skin burning sensation [None]
  - Burning sensation [None]
  - Burning sensation [None]
  - Abdominal pain upper [None]
  - Asthenia [None]
  - Dizziness [None]
  - Dyspnoea [None]

NARRATIVE: CASE EVENT DATE: 20230529
